FAERS Safety Report 4304541-7 (Version None)
Quarter: 2004Q1

REPORT INFORMATION
  Report Type: 
  Country: None (occurrence: None)
  Receive Date: 20040224
  Receipt Date: 20040209
  Transmission Date: 20041129
  Serious: Yes (Hospitalization)
  Sender: FDA-Public Use
  Company Number: 02P-062-0204172-00

PATIENT
  Age: 83 Year
  Sex: Male

DRUGS (3)
  1. ISOPTIN SR [Suspect]
     Indication: SICK SINUS SYNDROME
     Dosage: 120 MG, 1 IN 1 D
  2. COLCHICINE TABLETS (COLCHICINE) (COLCHICINE) [Suspect]
     Indication: GOUT
     Dosage: 1 MG, 1 IN 1 D, PER ORAL
     Route: 048
  3. AMBROXOL [Concomitant]

REACTIONS (5)
  - DRUG INTERACTION [None]
  - DRUG LEVEL ABOVE THERAPEUTIC [None]
  - GUILLAIN-BARRE SYNDROME [None]
  - QUADRIPLEGIA [None]
  - SELF-MEDICATION [None]
